FAERS Safety Report 10697640 (Version 1)
Quarter: 2015Q1

REPORT INFORMATION
  Report Type: Spontaneous
  Country: US (occurrence: None)
  Receive Date: 20150107
  Receipt Date: 20150107
  Transmission Date: 20150721
  Serious: Yes (Hospitalization)
  Sender: FDA-Public Use
  Company Number: None

PATIENT
  Age: 56 Year
  Sex: Female
  Weight: 86.26 kg

DRUGS (1)
  1. TAXOL [Suspect]
     Active Substance: PACLITAXEL
     Dates: start: 20140630, end: 20140811

REACTIONS (6)
  - Chest pain [None]
  - Pulmonary embolism [None]
  - Gastrointestinal haemorrhage [None]
  - Hiatus hernia [None]
  - Dyspnoea [None]
  - Oesophagitis [None]

NARRATIVE: CASE EVENT DATE: 20140818
